FAERS Safety Report 8274914-9 (Version None)
Quarter: 2012Q2

REPORT INFORMATION
  Report Type: 
  Country: None (occurrence: None)
  Receive Date: 20120411
  Receipt Date: 20120411
  Transmission Date: 20120825
  Serious: Yes (Other)
  Sender: FDA-Public Use
  Company Number: GB-JNJFOC-20120403309

PATIENT

DRUGS (32)
  1. DOXORUBICIN HCL [Suspect]
     Route: 042
  2. BLEOMYCIN SULFATE [Suspect]
     Indication: HODGKIN'S DISEASE
     Route: 042
  3. BLEOMYCIN SULFATE [Suspect]
     Route: 042
  4. BLEOMYCIN SULFATE [Suspect]
     Route: 042
  5. VINBLASTINE SULFATE [Suspect]
     Indication: HODGKIN'S DISEASE
     Route: 042
  6. PREDNISOLONE [Suspect]
     Indication: HODGKIN'S DISEASE
     Route: 048
  7. BLEOMYCIN SULFATE [Suspect]
     Route: 042
  8. PROCARBAZINE HYDROCHLORIDE [Suspect]
     Indication: HODGKIN'S DISEASE
     Route: 048
  9. DOXORUBICIN HCL [Suspect]
     Route: 042
  10. VINCRISTINE [Suspect]
     Route: 042
  11. DACARBAZINE [Suspect]
     Route: 042
  12. PREDNISOLONE [Suspect]
     Route: 048
  13. DOXORUBICIN HCL [Suspect]
     Route: 042
  14. VINCRISTINE [Suspect]
     Route: 042
  15. CHLORAMBUCIL [Suspect]
     Route: 048
  16. CHLORAMBUCIL [Suspect]
     Route: 048
  17. VINBLASTINE SULFATE [Suspect]
     Route: 042
  18. DACARBAZINE [Suspect]
     Route: 042
  19. CHLORAMBUCIL [Suspect]
     Indication: HODGKIN'S DISEASE
     Route: 048
  20. VINBLASTINE SULFATE [Suspect]
     Route: 042
  21. PROCARBAZINE HYDROCHLORIDE [Suspect]
     Route: 048
  22. PROCARBAZINE HYDROCHLORIDE [Suspect]
     Route: 048
  23. PREDNISOLONE [Suspect]
     Route: 048
  24. DACARBAZINE [Suspect]
     Indication: HODGKIN'S DISEASE
     Route: 042
  25. DACARBAZINE [Suspect]
     Route: 042
  26. CHLORAMBUCIL [Suspect]
     Route: 048
  27. VINBLASTINE SULFATE [Suspect]
     Route: 042
  28. PROCARBAZINE HYDROCHLORIDE [Suspect]
     Route: 048
  29. DOXORUBICIN HCL [Suspect]
     Indication: HODGKIN'S DISEASE
     Route: 042
  30. VINCRISTINE [Suspect]
     Indication: HODGKIN'S DISEASE
     Route: 042
  31. VINCRISTINE [Suspect]
     Route: 042
  32. PREDNISOLONE [Suspect]
     Route: 048

REACTIONS (1)
  - COLON CANCER [None]
